FAERS Safety Report 25645295 (Version 3)
Quarter: 2025Q3

REPORT INFORMATION
  Report Type: Spontaneous
  Country: EU (occurrence: EU)
  Receive Date: 20250805
  Receipt Date: 20250828
  Transmission Date: 20251021
  Serious: Yes (Hospitalization)
  Sender: MERCK SHARP & DOHME LLC
  Company Number: EU-009507513-2293013

PATIENT
  Age: 67 Year
  Sex: Female

DRUGS (5)
  1. SOTATERCEPT [Suspect]
     Active Substance: SOTATERCEPT
     Indication: Pulmonary arterial hypertension
     Dosage: 1 INJECTION EVERY 3 WEEKS, STRENGTH: 0.3 MG; FORMULATION REPORTED AS INJECTION
     Route: 058
  2. SOTATERCEPT [Suspect]
     Active Substance: SOTATERCEPT
     Dosage: 1 INJECTION EVERY 3 WEEKS,
     Route: 058
  3. SOTATERCEPT [Suspect]
     Active Substance: SOTATERCEPT
     Dosage: 1 INJECTION EVERY 3 WEEKS,
     Route: 058
  4. SOTATERCEPT [Suspect]
     Active Substance: SOTATERCEPT
  5. COUMADIN [Concomitant]
     Active Substance: WARFARIN SODIUM

REACTIONS (14)
  - Pneumonia [Unknown]
  - Incorrect dose administered [Unknown]
  - Arthralgia [Unknown]
  - Rash erythematous [Unknown]
  - Influenza like illness [Unknown]
  - Nasopharyngitis [Unknown]
  - Skin plaque [Unknown]
  - Productive cough [Unknown]
  - Haemoptysis [Unknown]
  - Back pain [Unknown]
  - Vaginal haemorrhage [Unknown]
  - Fatigue [Unknown]
  - Headache [Unknown]
  - Respiratory failure [Unknown]

NARRATIVE: CASE EVENT DATE: 20250101
